FAERS Safety Report 5934964-1 (Version None)
Quarter: 2008Q4

REPORT INFORMATION
  Report Type: 
  Country: None (occurrence: None)
  Receive Date: 20081028
  Receipt Date: 20081020
  Transmission Date: 20090506
  Serious: Yes (Life-Threatening, Other)
  Sender: FDA-Public Use
  Company Number: WAES 0810USA03912

PATIENT
  Age: 72 Year
  Sex: Male
  Weight: 96.1626 kg

DRUGS (10)
  1. CAP VORINOSTAT UNK [Suspect]
     Indication: PROSTATE CANCER
     Dosage: 100 MG, DAILY, PO
     Route: 048
     Dates: start: 20080922, end: 20081005
  2. DOCETAXEL [Suspect]
     Indication: PROSTATE CANCER
     Dosage: 60 MG/M[2]/Q3W, IV
     Route: 042
     Dates: start: 20080925, end: 20080925
  3. ALEVE [Concomitant]
  4. COMPAZINE [Concomitant]
  5. DECADRON [Concomitant]
  6. XANAX [Concomitant]
  7. ENALAPRIL MALEATE [Concomitant]
  8. IRON (UNSPECIFIED) [Concomitant]
  9. SIMVASTATIN [Concomitant]
  10. VITAMINS (UNSPECIFIED) [Concomitant]

REACTIONS (6)
  - ANXIETY [None]
  - BAND NEUTROPHIL COUNT DECREASED [None]
  - MUSCULOSKELETAL PAIN [None]
  - MYOCARDIAL INFARCTION [None]
  - PAIN IN EXTREMITY [None]
  - TROPONIN INCREASED [None]
